FAERS Safety Report 5076625-X (Version None)
Quarter: 2006Q3

REPORT INFORMATION
  Report Type: 
  Country: None (occurrence: None)
  Receive Date: 20060807
  Receipt Date: 20060725
  Transmission Date: 20061208
  Serious: Yes (Hospitalization)
  Sender: FDA-Public Use
  Company Number: 2006060787

PATIENT
  Age: 23 Year
  Sex: Female

DRUGS (1)
  1. FELDENE [Suspect]
     Indication: HEADACHE
     Dosage: 0.5 DOSE FORM (1 IN 1 D), ORAL
     Route: 048
     Dates: start: 20060306, end: 20060310

REACTIONS (6)
  - CHEILITIS [None]
  - PRURIGO [None]
  - RASH ERYTHEMATOUS [None]
  - RHINITIS [None]
  - TOXIC SKIN ERUPTION [None]
  - WHITE BLOOD CELL COUNT INCREASED [None]
